FAERS Safety Report 8572834-3 (Version None)
Quarter: 2012Q3

REPORT INFORMATION
  Report Type: 
  Country: None (occurrence: None)
  Receive Date: 20120806
  Receipt Date: 20120731
  Transmission Date: 20120928
  Serious: Yes (Other)
  Sender: FDA-Public Use
  Company Number: JP-ROCHE-1097552

PATIENT
  Age: 87 Year
  Sex: Male

DRUGS (2)
  1. LUCENTIS [Suspect]
     Indication: AGE-RELATED MACULAR DEGENERATION
     Route: 050
     Dates: start: 20100411
  2. LUCENTIS [Suspect]
     Route: 050
     Dates: start: 20110228

REACTIONS (1)
  - EYE HAEMORRHAGE [None]
